FAERS Safety Report 5473183-2 (Version None)
Quarter: 2007Q4

REPORT INFORMATION
  Report Type: 
  Country: None (occurrence: None)
  Receive Date: 20071001
  Receipt Date: 20070921
  Transmission Date: 20080405
  Serious: Yes (Hospitalization)
  Sender: FDA-Public Use
  Company Number: CG-MERCK-0709USA03597

PATIENT
  Age: 43 Year
  Sex: Female
  Weight: 78 kg

DRUGS (3)
  1. STROMECTOL [Suspect]
     Route: 048
     Dates: start: 20070626, end: 20070626
  2. QUININE [Concomitant]
     Route: 065
  3. ACETAMINOPHEN [Concomitant]
     Route: 065

REACTIONS (6)
  - AGGRESSION [None]
  - AGITATION [None]
  - DEPRESSED LEVEL OF CONSCIOUSNESS [None]
  - DIARRHOEA [None]
  - ENCEPHALOPATHY [None]
  - THIRST [None]
